FAERS Safety Report 25011125 (Version 1)
Quarter: 2025Q1

REPORT INFORMATION
  Report Type: Spontaneous
  Country: EG (occurrence: EG)
  Receive Date: 20250226
  Receipt Date: 20250226
  Transmission Date: 20250408
  Serious: Yes (Other)
  Sender: AMGEN
  Company Number: EG-PFIZER INC-PV202500019057

PATIENT
  Age: 54 Year
  Sex: Female

DRUGS (18)
  1. ENBREL [Suspect]
     Active Substance: ETANERCEPT
     Indication: Rheumatoid arthritis
     Dosage: ONE DOSE EVERY WEEK
     Route: 058
     Dates: start: 20230912, end: 20240903
  2. METHOTREXATE SODIUM [Concomitant]
     Active Substance: METHOTREXATE SODIUM
     Dosage: 50MG/2ML AMP (HALF CM IM EVERY SATURDAY)
     Route: 030
  3. FOLIC ACID [Concomitant]
     Active Substance: FOLIC ACID
     Dosage: 2 TABLETS EVERY TUESDAY
  4. LEFLUNOMIDE [Concomitant]
     Active Substance: LEFLUNOMIDE
     Dosage: ONE TABLET AFTER LUNCH
  5. Esomium [Concomitant]
     Dosage: ONE CAPSULE BEFORE DINNER BY AN HOUR
  6. BISOPROLOL FUMARATE\HYDROCHLOROTHIAZIDE [Concomitant]
     Active Substance: BISOPROLOL FUMARATE\HYDROCHLOROTHIAZIDE
     Dosage: ONE TABLET BEFORE BREAKFAST
  7. CALDIN C [Concomitant]
     Dosage: ONE TABLET AT NIGHT
  8. Betolvex [Concomitant]
     Route: 030
  9. CHOLEROSE [Concomitant]
  10. Calmag [Concomitant]
     Dosage: ONE TABLET AFTER LUNCH
  11. NOXILORN [Concomitant]
     Dosage: ONE TABLET AFTER BREAKFAST
  12. CYMBATEX [Concomitant]
     Dosage: ONE CAPSULE AFTER LUNCH
  13. AMITRIPTYLINE HYDROCHLORIDE [Concomitant]
     Active Substance: AMITRIPTYLINE HYDROCHLORIDE
     Dosage: ONE TABLET AT NIGHT
  14. Serioprazole [Concomitant]
     Dosage: ONE CAPSULE BEFORE DINNER BY AN HOUR
  15. ANTICOX II [Concomitant]
     Dosage: ONE TAB AFTER BREAKFAST
  16. DOROFEN [Concomitant]
     Dosage: ONE CAPSULE IN THE MORNING AND EVENING
  17. FLACORT [Concomitant]
     Dosage: 2 TABLETS AFTER BREAKFAST
  18. FLECTOR [Concomitant]
     Active Substance: DICLOFENAC EPOLAMINE
     Dosage: ONE CAPSULE AFTER DINNER

REACTIONS (1)
  - Pelvic fracture [Unknown]
